FAERS Safety Report 16050448 (Version 1)
Quarter: 2019Q1

REPORT INFORMATION
  Report Type: Spontaneous
  Country: CN (occurrence: CN)
  Receive Date: 20190308
  Receipt Date: 20190308
  Transmission Date: 20190418
  Serious: Yes (Death, Other)
  Sender: FDA-Public Use
  Company Number: CN-ROCHE-2268767

PATIENT
  Age: 31 Year
  Sex: Male

DRUGS (4)
  1. ZELBORAF [Suspect]
     Active Substance: VEMURAFENIB
     Indication: METASTASIS
     Dosage: IRREGULARLY
     Route: 065
     Dates: start: 201501, end: 201504
  2. PEMBROLIZUMAB. [Concomitant]
     Active Substance: PEMBROLIZUMAB
     Dosage: 1/3WEEKS
     Route: 065
     Dates: start: 20150527, end: 20150727
  3. ZELBORAF [Suspect]
     Active Substance: VEMURAFENIB
     Indication: MALIGNANT MELANOMA
     Route: 065
     Dates: start: 20140529, end: 20141215
  4. TEMOZOLOMIDE. [Concomitant]
     Active Substance: TEMOZOLOMIDE

REACTIONS (10)
  - Tumour rupture [Unknown]
  - Chest pain [Unknown]
  - Bone disorder [Unknown]
  - Rash [Unknown]
  - Movement disorder [Unknown]
  - Photosensitivity reaction [Unknown]
  - Pleural effusion [Unknown]
  - Back pain [Unknown]
  - Dysuria [Unknown]
  - General physical health deterioration [Unknown]

NARRATIVE: CASE EVENT DATE: 201406
